FAERS Safety Report 8052391-0 (Version None)
Quarter: 2011Q4

REPORT INFORMATION
  Report Type: 
  Country: None (occurrence: None)
  Receive Date: 20111228
  Receipt Date: 20111221
  Transmission Date: 20120403
  Serious: Yes (Other)
  Sender: FDA-Public Use
  Company Number: 2011028658

PATIENT
  Age: 72 Year
  Sex: Female
  Weight: 75.2971 kg

DRUGS (25)
  1. TICLID [Concomitant]
  2. LORTAB [Concomitant]
  3. HIZENTRA [Suspect]
  4. IPRATROPIUM BROMIDE [Concomitant]
  5. ACIDOPHILUS LACTOBACILLUS (LACTOBACILLUS ACIDOPHILUS) [Concomitant]
  6. HIZENTRA [Suspect]
  7. ALLEGRA [Concomitant]
  8. ALBUTEROL [Concomitant]
  9. ASPIRIN [Concomitant]
  10. HIZENTRA [Suspect]
  11. SINGULAIR [Concomitant]
  12. ZANTAC (RANITDINE HYDROCHLORIDE) [Concomitant]
  13. PULMICORT [Concomitant]
  14. HIZENTRA [Suspect]
     Indication: IMMUNODEFICIENCY COMMON VARIABLE
     Dosage: SEE IMAGE
     Route: 058
     Dates: start: 20110801
  15. HIZENTRA [Suspect]
     Indication: IMMUNODEFICIENCY COMMON VARIABLE
     Dosage: SEE IMAGE
     Route: 058
     Dates: start: 20110223
  16. HIZENTRA [Suspect]
     Indication: IMMUNODEFICIENCY COMMON VARIABLE
     Dosage: SEE IMAGE
     Route: 058
     Dates: start: 20110801
  17. HIZENTRA [Suspect]
  18. OMEPRAZOLE [Concomitant]
  19. CLONAZEPAM [Concomitant]
  20. HIZENTRA [Suspect]
  21. PLAVIX [Concomitant]
  22. PROTONIX [Concomitant]
  23. SIMVASTATIN [Concomitant]
  24. METOPROLOL TARTRATE [Concomitant]
  25. LISINOPRIL (LISNIOPRIL) [Concomitant]

REACTIONS (6)
  - PNEUMONIA [None]
  - INFLUENZA [None]
  - ABDOMINAL PAIN UPPER [None]
  - UPPER RESPIRATORY TRACT INFECTION [None]
  - OROPHARYNGEAL PAIN [None]
  - DIARRHOEA [None]
